FAERS Safety Report 8831441 (Version 1)
Quarter: 2012Q4

REPORT INFORMATION
  Report Type: 
  Country: US (occurrence: US)
  Receive Date: 20121009
  Receipt Date: 20121009
  Transmission Date: 20130627
  Serious: No
  Sender: FDA-Public Use
  Company Number: US-TEVA-312497USA

PATIENT
  Sex: Male

DRUGS (1)
  1. PACLITAXEL [Suspect]
     Dosage: 100 mg / 16.7 mL

REACTIONS (3)
  - Rash maculo-papular [Unknown]
  - Pruritus [Unknown]
  - Oedema peripheral [Unknown]
